FAERS Safety Report 23095191 (Version 1)
Quarter: 2023Q4

REPORT INFORMATION
  Report Type: Spontaneous
  Country: US (occurrence: None)
  Receive Date: 20231020
  Receipt Date: 20231020
  Transmission Date: 20240110
  Serious: No
  Sender: FDA-Public Use
  Company Number: None

PATIENT
  Age: 53 Year
  Sex: Female
  Weight: 126.45 kg

DRUGS (13)
  1. ATOMOXETINE [Suspect]
     Active Substance: ATOMOXETINE
     Indication: Depression
     Dosage: OTHER QUANTITY : 1 CAPSULE(S);?
     Route: 048
     Dates: start: 20231011, end: 20231020
  2. ATOMOXETINE [Suspect]
     Active Substance: ATOMOXETINE
     Indication: Attention deficit hyperactivity disorder
  3. VIREAD [Concomitant]
     Active Substance: TENOFOVIR DISOPROXIL FUMARATE
  4. singuair [Concomitant]
  5. nystatin topical [Concomitant]
  6. ketoconazole topical [Concomitant]
  7. ZYRTEC [Concomitant]
     Active Substance: CETIRIZINE HYDROCHLORIDE
  8. VITAMINS [Concomitant]
     Active Substance: VITAMINS
  9. MAGNESIUM [Concomitant]
     Active Substance: MAGNESIUM
  10. IRON [Concomitant]
     Active Substance: IRON
  11. VITAMIN C [Concomitant]
     Active Substance: ASCORBIC ACID
  12. phophoadidyl choline [Concomitant]
  13. MENAQUINONE 6 [Concomitant]
     Active Substance: MENAQUINONE 6

REACTIONS (1)
  - Tinnitus [None]

NARRATIVE: CASE EVENT DATE: 20231016
